FAERS Safety Report 9197432 (Version 1)
Quarter: 2013Q1

REPORT INFORMATION
  Report Type: Report from Study
  Country: JP (occurrence: JP)
  Receive Date: 20130328
  Receipt Date: 20130328
  Transmission Date: 20140127
  Serious: Yes (Hospitalization)
  Sender: FDA-Public Use
  Company Number: JP-GLAXOSMITHKLINE-B0666751A

PATIENT
  Age: 12 Year
  Sex: Male
  Weight: 45 kg

DRUGS (27)
  1. ARRANON [Suspect]
     Indication: T-CELL TYPE ACUTE LEUKAEMIA
     Dosage: 650MGM2 PER DAY
     Route: 042
     Dates: start: 20090530, end: 20090603
  2. ARRANON [Suspect]
     Indication: T-CELL TYPE ACUTE LEUKAEMIA
     Dosage: 650MGM2 PER DAY
     Route: 042
     Dates: start: 20090626, end: 20090630
  3. ARRANON [Suspect]
     Indication: T-CELL TYPE ACUTE LEUKAEMIA
     Dosage: 650MGM2 PER DAY
     Route: 042
     Dates: start: 20090718, end: 20090722
  4. ARRANON [Suspect]
     Indication: T-CELL TYPE ACUTE LEUKAEMIA
     Dosage: 650MGM2 PER DAY
     Route: 042
     Dates: start: 20090827, end: 20090831
  5. CYCLOPHOSPHAMIDE [Suspect]
     Indication: PRODUCT USED FOR UNKNOWN INDICATION
     Route: 065
  6. LASTET [Suspect]
     Indication: PRODUCT USED FOR UNKNOWN INDICATION
     Route: 065
     Dates: start: 20090627, end: 20090701
  7. LASTET [Suspect]
     Indication: PRODUCT USED FOR UNKNOWN INDICATION
     Route: 065
     Dates: start: 20090815, end: 20090821
  8. LEUNASE [Suspect]
     Indication: PRODUCT USED FOR UNKNOWN INDICATION
     Dosage: 6000IU3 PER DAY
     Route: 042
     Dates: start: 20090613, end: 20090617
  9. LEUNASE [Suspect]
     Indication: PRODUCT USED FOR UNKNOWN INDICATION
     Dosage: 6000IU3 PER DAY
     Route: 042
     Dates: start: 20090620, end: 20090624
  10. LEUNASE [Suspect]
     Indication: PRODUCT USED FOR UNKNOWN INDICATION
     Dosage: 6000IU3 PER DAY
     Route: 042
     Dates: start: 20090725, end: 20090725
  11. LEUNASE [Suspect]
     Indication: PRODUCT USED FOR UNKNOWN INDICATION
     Dosage: 6000IU3 PER DAY
     Route: 042
     Dates: start: 20090728, end: 20090728
  12. LEUNASE [Suspect]
     Indication: PRODUCT USED FOR UNKNOWN INDICATION
     Dosage: 6000IU3 PER DAY
     Route: 042
     Dates: start: 20090801, end: 20090801
  13. LEUNASE [Suspect]
     Indication: PRODUCT USED FOR UNKNOWN INDICATION
     Dosage: 6000IU3 PER DAY
     Route: 042
     Dates: start: 20090804, end: 20090804
  14. CYLOCIDE [Suspect]
     Indication: PRODUCT USED FOR UNKNOWN INDICATION
     Dates: start: 20090726, end: 20090729
  15. CYLOCIDE [Suspect]
     Indication: PRODUCT USED FOR UNKNOWN INDICATION
     Dates: start: 20090802, end: 20090805
  16. PREDNISOLONE [Concomitant]
     Indication: NEOPLASM MALIGNANT
     Dates: start: 20090508, end: 20090512
  17. LEUKERIN [Concomitant]
     Indication: NEOPLASM MALIGNANT
     Route: 048
     Dates: start: 20090508, end: 20090512
  18. VINCRISTINE SULFATE [Concomitant]
     Indication: NEOPLASM MALIGNANT
     Route: 042
     Dates: start: 20090508, end: 20090508
  19. PIRARUBICIN HYDROCHLORIDE [Concomitant]
     Indication: NEOPLASM MALIGNANT
     Dates: start: 20090508, end: 20090508
  20. ZOSYN [Concomitant]
     Indication: INFECTION
     Dates: start: 20090527, end: 20090630
  21. ATROPINE [Concomitant]
     Indication: SEDATION
     Dates: start: 20090529, end: 20090803
  22. DORMICUM [Concomitant]
     Indication: SEDATION
     Dates: start: 20090529, end: 20090803
  23. SOLITA-T NO.1 [Concomitant]
     Indication: FLUID REPLACEMENT
     Route: 042
     Dates: start: 20090529, end: 20090808
  24. GRANISETRON [Concomitant]
     Indication: NAUSEA
     Route: 042
     Dates: start: 20090530, end: 20090831
  25. ATARAX [Concomitant]
     Indication: INSOMNIA
     Dates: start: 20090606, end: 20090617
  26. PROTEAMIN [Concomitant]
     Indication: FLUID REPLACEMENT
     Route: 042
     Dates: start: 20090626, end: 20090831
  27. GRAN [Concomitant]
     Indication: NEUTROPENIA
     Route: 042
     Dates: start: 20090706, end: 20090911

REACTIONS (11)
  - Aspartate aminotransferase increased [Recovering/Resolving]
  - Alanine aminotransferase increased [Recovering/Resolving]
  - Nausea [Recovering/Resolving]
  - Vomiting [Recovering/Resolving]
  - Antithrombin III decreased [Recovering/Resolving]
  - Hyperbilirubinaemia [Recovering/Resolving]
  - Pyrexia [Recovering/Resolving]
  - Stomatitis [Recovered/Resolved]
  - Haemoglobin decreased [Recovering/Resolving]
  - Platelet count decreased [Recovering/Resolving]
  - Febrile neutropenia [Recovering/Resolving]
